FAERS Safety Report 17811470 (Version 1)
Quarter: 2020Q2

REPORT INFORMATION
  Report Type: Spontaneous
  Country: US (occurrence: US)
  Receive Date: 20200521
  Receipt Date: 20200521
  Transmission Date: 20200714
  Serious: No
  Sender: FDA-Public Use
  Company Number: US-PFIZER INC-2019169888

PATIENT
  Age: 48 Year
  Sex: Female
  Weight: 75.3 kg

DRUGS (8)
  1. RAPAMUNE [Suspect]
     Active Substance: SIROLIMUS
     Indication: BALANCE DISORDER
     Dosage: 1.5 MG, 2X/DAY (TAKE 0.5 MG TAB (ALONG WITH 1 MG TAB FOR TOTAL DOSE OF 1.5 MG) TWICE DAILY)
     Route: 048
  2. RAPAMUNE [Suspect]
     Active Substance: SIROLIMUS
     Indication: NEUROFIBROMA
     Dosage: 4.5 MG, DAILY (TAKE TWO 1MG TAB EVERY MORNING, TAKE TWO 1MG TAB WITH ONE 0.5MG TAB EVERY EVENING)
     Route: 048
  3. RAPAMUNE [Suspect]
     Active Substance: SIROLIMUS
     Indication: NEOPLASM
  4. RAPAMUNE [Suspect]
     Active Substance: SIROLIMUS
     Indication: GAIT DISTURBANCE
     Dosage: 1.5 MG, 2X/DAY (TAKE ONE 1 MG TABLET (ALONG WITH ONCE 0.5 MG TABLET TOTAL DOSE: 1.5 MG) TWICE DAILY)
     Route: 048
     Dates: start: 20190327
  5. RAPAMUNE [Suspect]
     Active Substance: SIROLIMUS
     Indication: NEUROFIBROMATOSIS
     Dosage: 2 MG, 1X/DAY (TAKE TWO 1MG TABLETS BY MOUTH EVERY MORNING)
     Route: 048
  6. RAPAMUNE [Suspect]
     Active Substance: SIROLIMUS
     Indication: MASS
     Dosage: 2.5 MG, 1X/DAY (TAKE TWO 1MG TABLETS WITH ONE 0.5MG TABLET (2.5MG TOTAL) EVERY EVENING)
     Route: 048
  7. LISINOPRIL. [Concomitant]
     Active Substance: LISINOPRIL
     Indication: HYPERTENSION
     Dosage: 20-25, 1X/DAY
  8. RAPAMUNE [Suspect]
     Active Substance: SIROLIMUS
     Indication: THERAPEUTIC PROCEDURE

REACTIONS (2)
  - Off label use [Unknown]
  - Product use in unapproved indication [Unknown]

NARRATIVE: CASE EVENT DATE: 20190327
